FAERS Safety Report 10734710 (Version 6)
Quarter: 2015Q2

REPORT INFORMATION
  Report Type: Report from Study
  Country: US (occurrence: US)
  Receive Date: 20150123
  Receipt Date: 20150522
  Transmission Date: 20150821
  Serious: Yes (Hospitalization)
  Sender: FDA-Public Use
  Company Number: US-AMGEN INC.-USASL2014100138

PATIENT
  Age: 72 Year
  Sex: Female

DRUGS (2)
  1. KYPROLIS [Suspect]
     Active Substance: CARFILZOMIB
     Indication: PLASMA CELL MYELOMA
     Dosage: UNK, 2 TIMES/WK
     Route: 042
     Dates: end: 201504
  2. NEUPOGEN [Suspect]
     Active Substance: FILGRASTIM
     Indication: WHITE BLOOD CELL COUNT DECREASED
     Dosage: UNK UNK, UNK
     Route: 065
     Dates: start: 20150419, end: 20150420

REACTIONS (8)
  - Pneumonia [Unknown]
  - Malaise [Unknown]
  - Limb discomfort [Unknown]
  - Fatigue [Unknown]
  - Influenza [Unknown]
  - White blood cell count decreased [Unknown]
  - Rib fracture [Not Recovered/Not Resolved]
  - Viral infection [Unknown]

NARRATIVE: CASE EVENT DATE: 2015
